FAERS Safety Report 6549323-0 (Version None)
Quarter: 2010Q1

REPORT INFORMATION
  Report Type: 
  Country: None (occurrence: None)
  Receive Date: 20100125
  Receipt Date: 20100112
  Transmission Date: 20100710
  Serious: Yes (Other)
  Sender: FDA-Public Use
  Company Number: PHHY2009CA51357

PATIENT
  Sex: Female
  Weight: 116 kg

DRUGS (3)
  1. CLOZARIL [Suspect]
     Indication: BIPOLAR DISORDER
     Dosage: VARIABLE UP TO 125 MG
     Route: 048
     Dates: start: 20080714, end: 20091020
  2. PIMOZIDE [Concomitant]
     Dosage: 18 MG DAILY
  3. PROCYCLIDINE HYDROCHLORIDE 2MG TAB [Concomitant]
     Dosage: UP TO 25 MG DAILY

REACTIONS (5)
  - BLOOD GLUCOSE INCREASED [None]
  - BLOOD TRIGLYCERIDES INCREASED [None]
  - METABOLIC SYNDROME [None]
  - OBESITY [None]
  - WEIGHT INCREASED [None]
